FAERS Safety Report 8819111 (Version 2)
Quarter: 2012Q4

REPORT INFORMATION
  Report Type: 
  Country: JP (occurrence: JP)
  Receive Date: 20121001
  Receipt Date: 20121116
  Transmission Date: 20130627
  Serious: Yes (Hospitalization, Other)
  Sender: FDA-Public Use
  Company Number: JP-AMGEN-JPNCT2012061293

PATIENT
  Age: 85 Year
  Sex: Male
  Weight: 58 kg

DRUGS (33)
  1. DARBEPOETIN ALFA [Suspect]
     Indication: NEPHROGENIC ANAEMIA
     Dosage: 30 mug, q4wk
     Route: 040
     Dates: start: 20101019, end: 20101217
  2. DARBEPOETIN ALFA [Suspect]
     Dosage: 60 mug, q4wk
     Route: 040
     Dates: start: 20110114, end: 20110314
  3. DARBEPOETIN ALFA [Suspect]
     Dosage: 60 mug, qwk
     Route: 040
     Dates: start: 20110329, end: 20110425
  4. DARBEPOETIN ALFA [Suspect]
     Dosage: 60 mug, q4wk
     Route: 040
     Dates: start: 20110524, end: 20110817
  5. DARBEPOETIN ALFA [Suspect]
     Dosage: 120 mug, q4wk
     Route: 040
     Dates: start: 20110916
  6. PERSANTIN [Concomitant]
     Dosage: UNK
     Route: 048
  7. ARGAMATE [Concomitant]
     Dosage: UNK
     Route: 048
  8. LASIX [Concomitant]
     Dosage: UNK
     Route: 048
  9. ZYLORIC [Concomitant]
     Dosage: UNK
     Route: 048
  10. BLADDERON [Concomitant]
     Dosage: UNK
     Route: 048
  11. VOGLIBOSE [Concomitant]
     Dosage: UNK
     Route: 048
  12. GLUFAST [Concomitant]
     Dosage: UNK
     Route: 048
  13. NORVASC [Concomitant]
     Dosage: UNK UNK, UNK
     Route: 048
  14. OLMETEC [Concomitant]
     Dosage: UNK
     Route: 048
  15. CELECOX [Concomitant]
     Dosage: UNK
     Route: 048
  16. SELBEX [Concomitant]
     Dosage: UNK
     Route: 048
  17. SENNARIDE [Concomitant]
     Dosage: UNK
     Route: 048
  18. PARIET [Concomitant]
     Dosage: UNK
     Route: 048
  19. NOVORAPID [Concomitant]
     Dosage: UNK
     Route: 042
  20. LANTUS [Concomitant]
     Dosage: UNK
     Route: 042
  21. FLIVAS [Concomitant]
     Dosage: UNK
     Route: 048
  22. VESICARE [Concomitant]
     Dosage: UNK
     Route: 048
  23. STARSIS [Concomitant]
     Dosage: UNK
     Route: 048
  24. NEUROTROPIN [Concomitant]
     Dosage: UNK
     Route: 048
  25. GASTER [Concomitant]
     Dosage: UNK
     Route: 048
  26. PROMAC [Concomitant]
     Dosage: UNK
     Route: 048
  27. METHYCOBIDE [Concomitant]
     Dosage: UNK
     Route: 048
     Dates: start: 20110509, end: 20110729
  28. KREMEZIN [Concomitant]
     Indication: DIABETIC NEPHROPATHY
     Dosage: UNK
     Route: 048
  29. KAYEXALATE [Concomitant]
     Dosage: UNK
     Route: 048
  30. EQUA [Concomitant]
     Dosage: UNK
     Route: 048
  31. AMARYL [Concomitant]
     Dosage: UNK
     Route: 048
  32. TRAMCET [Concomitant]
     Dosage: UNK
     Route: 048
  33. NOVAMIN [Concomitant]
     Dosage: UNK
     Route: 048
     Dates: start: 20110509, end: 20110915

REACTIONS (4)
  - Renal failure acute [Recovering/Resolving]
  - Neuropathy peripheral [Recovered/Resolved]
  - Schizophrenia [Recovered/Resolved]
  - Rectal cancer [Recovered/Resolved]
